FAERS Safety Report 6697594-2 (Version None)
Quarter: 2010Q2

REPORT INFORMATION
  Report Type: 
  Country: None (occurrence: None)
  Receive Date: 20100422
  Receipt Date: 20100414
  Transmission Date: 20101027
  Serious: Yes (Life-Threatening, Hospitalization)
  Sender: FDA-Public Use
  Company Number: 2010SP000267

PATIENT
  Age: 44 Year
  Sex: Female
  Weight: 154.5 kg

DRUGS (8)
  1. CICLESONIDE HFA [Suspect]
     Indication: RHINITIS PERENNIAL
     Dosage: 160 UG; BID; INHALATION
     Route: 055
     Dates: start: 20091014, end: 20100127
  2. MEVACOR [Concomitant]
  3. SYNTHROID [Concomitant]
  4. VITAMIN C /00008001/ [Concomitant]
  5. FISH OIL [Concomitant]
  6. VITAMIN A [Concomitant]
  7. ROBITUSSIN DM / 00288801/ [Concomitant]
  8. BENADRYL [Concomitant]

REACTIONS (3)
  - CEREBROVASCULAR ACCIDENT [None]
  - FALL [None]
  - STAPHYLOCOCCAL INFECTION [None]
